FAERS Safety Report 6516130-4 (Version None)
Quarter: 2009Q4

REPORT INFORMATION
  Report Type: 
  Country: None (occurrence: None)
  Receive Date: 20091223
  Receipt Date: 20091214
  Transmission Date: 20100525
  Serious: Yes (Other)
  Sender: FDA-Public Use
  Company Number: GR-JNJFOC-20091204874

PATIENT
  Sex: Male

DRUGS (4)
  1. DAKTARIN [Suspect]
     Route: 048
  2. DAKTARIN [Suspect]
     Indication: STOMATITIS
     Route: 048
  3. TAVOR [Concomitant]
     Indication: ANXIETY
  4. ASPIRIN [Concomitant]
     Indication: ANTIPLATELET THERAPY

REACTIONS (3)
  - DRUG INEFFECTIVE [None]
  - HALLUCINATION [None]
  - ILLUSION [None]
